FAERS Safety Report 4400856-2 (Version None)
Quarter: 2004Q3

REPORT INFORMATION
  Report Type: 
  Country: None (occurrence: None)
  Receive Date: 20040907
  Receipt Date: 20030708
  Transmission Date: 20050211
  Serious: No
  Sender: FDA-Public Use
  Company Number: US-BRISTOL-MYERS SQUIBB COMPANY-12320123

PATIENT
  Age: 62 Year
  Sex: Male

DRUGS (3)
  1. WARFARIN SODIUM [Suspect]
     Dates: end: 20030101
  2. PAXIL [Suspect]
     Indication: NERVOUSNESS
     Route: 048
     Dates: start: 19990601
  3. PAXIL [Suspect]
     Indication: DRUG WITHDRAWAL SYNDROME
     Route: 048
     Dates: start: 19990601

REACTIONS (3)
  - FEELING ABNORMAL [None]
  - INSOMNIA [None]
  - TREMOR [None]
